FAERS Safety Report 11420350 (Version 4)
Quarter: 2015Q4

REPORT INFORMATION
  Report Type: Report from Study
  Country: JP (occurrence: JP)
  Receive Date: 20150826
  Receipt Date: 20151105
  Transmission Date: 20160304
  Serious: No
  Sender: FDA-Public Use
  Company Number: JP-PFIZER INC-2015280659

PATIENT
  Age: 61 Year
  Sex: Female
  Weight: 34.5 kg

DRUGS (10)
  1. BAYASPIRIN [Concomitant]
     Active Substance: ASPIRIN
     Route: 048
  2. PARIET [Concomitant]
     Active Substance: RABEPRAZOLE SODIUM
     Route: 048
  3. FUROSEMIDE. [Concomitant]
     Active Substance: FUROSEMIDE
     Route: 048
  4. MAGLAX [Concomitant]
     Active Substance: MAGNESIUM OXIDE
     Indication: PROPHYLAXIS
     Dosage: UNK
     Route: 048
     Dates: start: 20150722
  5. TOFACITINIB CITRATE [Suspect]
     Active Substance: TOFACITINIB CITRATE
     Indication: RHEUMATOID ARTHRITIS
     Dosage: UNK UNK, 1X/DAY
     Route: 048
     Dates: start: 20150623, end: 20150811
  6. TEPRENONE [Concomitant]
     Active Substance: TEPRENONE
     Route: 048
  7. PREDONINE [Concomitant]
     Active Substance: PREDNISOLONE\PREDNISOLONE ACETATE\PREDNISOLONE SODIUM SUCCINATE
     Dosage: 5 MG, DAILY
  8. TRACLEER [Concomitant]
     Active Substance: BOSENTAN
     Route: 048
  9. MICARDIS [Concomitant]
     Active Substance: TELMISARTAN
     Route: 048
  10. FERROMIA [Concomitant]
     Active Substance: FERROUS CITRATE
     Route: 048

REACTIONS (1)
  - Pyrexia [Recovered/Resolved]

NARRATIVE: CASE EVENT DATE: 20150819
